FAERS Safety Report 8834434 (Version 1)
Quarter: 2012Q4

REPORT INFORMATION
  Report Type: 
  Country: BR (occurrence: BR)
  Receive Date: 20121010
  Receipt Date: 20121010
  Transmission Date: 20130627
  Serious: Yes (Other)
  Sender: FDA-Public Use
  Company Number: BR-ABBOTT-12P-020-0992131-00

PATIENT
  Age: 22 None
  Sex: Female
  Weight: 57 kg

DRUGS (5)
  1. HUMIRA [Suspect]
     Indication: CROHN^S DISEASE
     Route: 058
     Dates: start: 201207
  2. HUMIRA [Suspect]
     Route: 058
  3. MESALAZINE [Concomitant]
     Indication: CROHN^S DISEASE
     Route: 048
  4. TIORFAN [Concomitant]
     Indication: PROPHYLAXIS AGAINST DIARRHOEA
     Dosage: 2 sachet diluted in water daily
     Route: 048
  5. ZENFORIN [Concomitant]
     Indication: DEPRESSION
     Route: 048

REACTIONS (9)
  - Convulsion [Recovered/Resolved]
  - Vomiting [Not Recovered/Not Resolved]
  - Diarrhoea [Not Recovered/Not Resolved]
  - Decreased appetite [Not Recovered/Not Resolved]
  - Red blood cell microcytes present [Not Recovered/Not Resolved]
  - Arthritis [Not Recovered/Not Resolved]
  - Rash erythematous [Recovering/Resolving]
  - Hyperkeratosis [Not Recovered/Not Resolved]
  - Dermatitis [Not Recovered/Not Resolved]
